FAERS Safety Report 18689018 (Version 1)
Quarter: 2020Q4

REPORT INFORMATION
  Report Type: Spontaneous
  Country: US (occurrence: US)
  Receive Date: 20201231
  Receipt Date: 20201231
  Transmission Date: 20210114
  Serious: Yes (Death)
  Sender: FDA-Public Use
  Company Number: US-BAXTER-2020BAX026566

PATIENT
  Age: 80 Year
  Sex: Male

DRUGS (1)
  1. FLUCONAZOLE INJECTION,USP (IN 0.9% SODIUM CHLORIDE INJECTION) [Suspect]
     Active Substance: FLUCONAZOLE
     Indication: PRODUCT USED FOR UNKNOWN INDICATION
     Dosage: THE MEDIC ZOLEATION WAS STOPPED AFTER THREE DOSES
     Route: 065

REACTIONS (7)
  - Acute kidney injury [Fatal]
  - Coagulopathy [Fatal]
  - Hepatic encephalopathy [Fatal]
  - Rash [Unknown]
  - Acute hepatic failure [Fatal]
  - Drug-induced liver injury [Fatal]
  - Hepatic cyst [Fatal]
